FAERS Safety Report 18347420 (Version 2)
Quarter: 2020Q4

REPORT INFORMATION
  Report Type: Spontaneous
  Country: JP (occurrence: JP)
  Receive Date: 20201006
  Receipt Date: 20201210
  Transmission Date: 20210114
  Serious: Yes (Other)
  Sender: FDA-Public Use
  Company Number: NVSJ2020JP009750

PATIENT
  Age: 27 Year
  Sex: Female

DRUGS (1)
  1. GILENYA [Suspect]
     Active Substance: FINGOLIMOD HYDROCHLORIDE
     Indication: MULTIPLE SCLEROSIS
     Dosage: UNK
     Route: 048

REACTIONS (8)
  - Cerebellar ataxia [Unknown]
  - Fatigue [Unknown]
  - Cerebral atrophy [Unknown]
  - Multiple sclerosis [Unknown]
  - Pyramidal tract syndrome [Unknown]
  - Palmomental reflex [Unknown]
  - Irritability [Unknown]
  - Dysuria [Unknown]
